FAERS Safety Report 4645801-X (Version None)
Quarter: 2005Q2

REPORT INFORMATION
  Report Type: 
  Country: None (occurrence: None)
  Receive Date: 20050425
  Receipt Date: 20050411
  Transmission Date: 20051028
  Serious: No
  Sender: FDA-Public Use
  Company Number: S05-USA-00537-01

PATIENT
  Age: 79 Year
  Sex: Female

DRUGS (11)
  1. LEXAPRO [Suspect]
     Indication: DEPRESSION
     Dosage: 20 MG QD PO
     Route: 048
     Dates: start: 20030717
  2. IMURAN [Concomitant]
  3. LOPRESSOR [Concomitant]
  4. PREDNISONE TAB [Concomitant]
  5. PLAVIX [Concomitant]
  6. LASIX [Concomitant]
  7. POTASSIUM CHLORIDE [Concomitant]
  8. ASPIRIN [Concomitant]
  9. TYLENOL [Concomitant]
  10. CITRACAL (CALCIUM CITRATE) [Concomitant]
  11. MULTIVITAMIN [Concomitant]

REACTIONS (38)
  - ANTINUCLEAR ANTIBODY POSITIVE [None]
  - BLOOD CREATININE INCREASED [None]
  - BLOOD UREA INCREASED [None]
  - BURSITIS [None]
  - CEREBROVASCULAR ACCIDENT [None]
  - CONFUSIONAL STATE [None]
  - CONTUSION [None]
  - CREATINE PHOSPHOKINASE DECREASED [None]
  - DIARRHOEA [None]
  - FACIAL BONES FRACTURE [None]
  - FALL [None]
  - FATIGUE [None]
  - HAEMATOMA [None]
  - HALLUCINATION, VISUAL [None]
  - HYPERTROPHY [None]
  - INFLAMMATION [None]
  - INTERVERTEBRAL DISC PROTRUSION [None]
  - INTERVERTEBRAL DISC SPACE NARROWING [None]
  - INTRACRANIAL ANEURYSM [None]
  - LOSS OF CONSCIOUSNESS [None]
  - MUSCLE ATROPHY [None]
  - MUSCLE RUPTURE [None]
  - MUSCULAR WEAKNESS [None]
  - NAUSEA [None]
  - NERVE CONDUCTION STUDIES ABNORMAL [None]
  - NEUROPATHY [None]
  - OSTEOARTHRITIS [None]
  - OSTEOPENIA [None]
  - PAIN [None]
  - RED BLOOD CELL SEDIMENTATION RATE INCREASED [None]
  - RENAL ARTERY STENOSIS [None]
  - SKIN LACERATION [None]
  - SOMNOLENCE [None]
  - SPINAL FRACTURE [None]
  - SPINAL OSTEOARTHRITIS [None]
  - SWELLING FACE [None]
  - TRI-IODOTHYRONINE UPTAKE INCREASED [None]
  - WEIGHT INCREASED [None]
